FAERS Safety Report 8225584-7 (Version None)
Quarter: 2012Q1

REPORT INFORMATION
  Report Type: 
  Country: None (occurrence: None)
  Receive Date: 20120321
  Receipt Date: 20120312
  Transmission Date: 20120608
  Serious: Yes (Other)
  Sender: FDA-Public Use
  Company Number: CHPA2012IT004704

PATIENT
  Sex: Female

DRUGS (2)
  1. IBUPROFEN [Suspect]
     Indication: INFLUENZA
     Dosage: 1 DF, UNK
     Dates: start: 20120128, end: 20120201
  2. ACETAMINOPHEN [Suspect]
     Indication: INFLUENZA
     Dosage: 1 DF, UNK
     Route: 048
     Dates: start: 20120128, end: 20120201

REACTIONS (5)
  - FACE OEDEMA [None]
  - LOCALISED OEDEMA [None]
  - PRURITUS [None]
  - HYPERAEMIA [None]
  - ERYTHEMA [None]
